FAERS Safety Report 4615134-6 (Version None)
Quarter: 2005Q1

REPORT INFORMATION
  Report Type: 
  Country: None (occurrence: None)
  Receive Date: 20050322
  Receipt Date: 20050314
  Transmission Date: 20050727
  Serious: Yes (Other)
  Sender: FDA-Public Use
  Company Number: US-GLAXOSMITHKLINE-A0549619A

PATIENT
  Age: 32 Year
  Sex: Male

DRUGS (2)
  1. PAXIL CR [Suspect]
     Indication: DEPRESSION
     Route: 048
     Dates: start: 20050201, end: 20050313
  2. VITAMINS [Concomitant]

REACTIONS (2)
  - GRAND MAL CONVULSION [None]
  - WOLFF-PARKINSON-WHITE SYNDROME [None]
